FAERS Safety Report 5414879-8 (Version None)
Quarter: 2007Q3

REPORT INFORMATION
  Report Type: 
  Country: None (occurrence: None)
  Receive Date: 20070815
  Receipt Date: 20070405
  Transmission Date: 20080115
  Serious: No
  Sender: FDA-Public Use
  Company Number: US-KINGPHARMUSA00001-K200700425

PATIENT

DRUGS (5)
  1. SEPTRA [Suspect]
     Indication: URINARY TRACT INFECTION
     Dosage: UNK, BID
     Route: 048
     Dates: start: 20070405
  2. PROZAC [Concomitant]
  3. KLONOPIN [Concomitant]
  4. TRAZODONE HCL [Concomitant]
  5. TESTOSTERONE [Concomitant]

REACTIONS (1)
  - LOCAL SWELLING [None]
